FAERS Safety Report 10538374 (Version 2)
Quarter: 2014Q4

REPORT INFORMATION
  Report Type: Spontaneous
  Country: UA (occurrence: UA)
  Receive Date: 20141023
  Receipt Date: 20141216
  Transmission Date: 20150529
  Serious: Yes (Other)
  Sender: FDA-Public Use
  Company Number: UA-JNJFOC-20141010917

PATIENT

DRUGS (1)
  1. DOXORUBICIN HYDROCHLORIDE. [Suspect]
     Active Substance: DOXORUBICIN HYDROCHLORIDE
     Indication: ACUTE LYMPHOCYTIC LEUKAEMIA
     Route: 065

REACTIONS (10)
  - Cardiomyopathy [Unknown]
  - Asthenia [Unknown]
  - Performance status decreased [Unknown]
  - Off label use [Unknown]
  - Headache [Unknown]
  - Hypotension [Unknown]
  - Sleep disorder [Unknown]
  - Brain natriuretic peptide increased [Unknown]
  - Irritability [Unknown]
  - Abdominal pain [Unknown]
